FAERS Safety Report 6503702-6 (Version None)
Quarter: 2009Q4

REPORT INFORMATION
  Report Type: 
  Country: None (occurrence: None)
  Receive Date: 20091217
  Receipt Date: 20091207
  Transmission Date: 20100525
  Serious: Yes (Other)
  Sender: FDA-Public Use
  Company Number: PHHY2009US54180

PATIENT
  Sex: Male

DRUGS (3)
  1. AREDIA [Suspect]
     Route: 042
  2. REVLIMID [Suspect]
     Indication: MULTIPLE MYELOMA
     Dosage: 25 MG, QD
     Route: 048
     Dates: start: 20091022
  3. ASPIRIN [Concomitant]

REACTIONS (3)
  - INFUSION SITE THROMBOSIS [None]
  - MASS [None]
  - VENOUS THROMBOSIS [None]
